FAERS Safety Report 6824625-9 (Version None)
Quarter: 2010Q3

REPORT INFORMATION
  Report Type: 
  Country: None (occurrence: None)
  Receive Date: 20100708
  Receipt Date: 20061105
  Transmission Date: 20110219
  Serious: No
  Sender: FDA-Public Use
  Company Number: US-PFIZER INC-2006139683

PATIENT
  Sex: Female
  Weight: 65.77 kg

DRUGS (7)
  1. CHANTIX [Suspect]
     Indication: EX-TOBACCO USER
     Dates: start: 20061027
  2. WARFARIN SODIUM [Concomitant]
  3. OMEPRAZOLE [Concomitant]
  4. METHOCARBAMOL [Concomitant]
  5. LIPITOR [Concomitant]
  6. PROPOXYPHENE HCL AND ACETAMINOPHEN [Concomitant]
  7. LISINOPRIL [Concomitant]

REACTIONS (5)
  - CONSTIPATION [None]
  - DECREASED APPETITE [None]
  - DYSGEUSIA [None]
  - FOOD CRAVING [None]
  - PAROSMIA [None]
